FAERS Safety Report 7898004-X (Version None)
Quarter: 2011Q4

REPORT INFORMATION
  Report Type: 
  Country: None (occurrence: None)
  Receive Date: 20111107
  Receipt Date: 20111107
  Transmission Date: 20120403
  Serious: Yes (Life-Threatening)
  Sender: FDA-Public Use
  Company Number: None

PATIENT
  Age: 57 Year
  Sex: Male
  Weight: 111.13 kg

DRUGS (1)
  1. AMLODIPINE [Suspect]
     Indication: HYPERTENSION
     Dosage: 5 MG
     Dates: start: 20111103, end: 20111103

REACTIONS (11)
  - UNEVALUABLE EVENT [None]
  - PRESYNCOPE [None]
  - DIZZINESS [None]
  - SOMNOLENCE [None]
  - CHEST DISCOMFORT [None]
  - FLUSHING [None]
  - ATRIAL FIBRILLATION [None]
  - DYSPNOEA [None]
  - FATIGUE [None]
  - HEADACHE [None]
  - HYPERHIDROSIS [None]
